FAERS Safety Report 7623256-0 (Version None)
Quarter: 2011Q3

REPORT INFORMATION
  Report Type: 
  Country: None (occurrence: None)
  Receive Date: 20110720
  Receipt Date: 20110715
  Transmission Date: 20111222
  Serious: Yes (Other)
  Sender: FDA-Public Use
  Company Number: US-JNJFOC-20110403131

PATIENT
  Sex: Female
  Weight: 90.72 kg

DRUGS (4)
  1. DURAGESIC-100 [Suspect]
     Indication: PAIN
     Route: 062
     Dates: start: 20090101
  2. VALIUM [Suspect]
     Indication: MUSCLE SPASMS
     Route: 048
  3. MORPHINE SULFATE [Suspect]
     Indication: PRODUCT USED FOR UNKNOWN INDICATION
     Route: 048
  4. MORPHINE SULFATE [Suspect]
     Indication: PAIN
     Route: 048

REACTIONS (7)
  - CONSTIPATION [None]
  - PAIN [None]
  - SOMNOLENCE [None]
  - MUSCULOSKELETAL PAIN [None]
  - ANXIETY [None]
  - NAUSEA [None]
  - INCORRECT DRUG ADMINISTRATION DURATION [None]
